FAERS Safety Report 22706695 (Version 4)
Quarter: 2023Q4

REPORT INFORMATION
  Report Type: Spontaneous
  Country: US (occurrence: US)
  Receive Date: 20230714
  Receipt Date: 20231024
  Transmission Date: 20240110
  Serious: No
  Sender: FDA-Public Use
  Company Number: US-PFIZER INC-202300248066

PATIENT
  Age: 73 Year
  Sex: Male

DRUGS (3)
  1. OXBRYTA [Suspect]
     Active Substance: VOXELOTOR
     Indication: Haemoglobin increased
     Dosage: 1500 MG, 1X/DAY
     Route: 048
     Dates: start: 202301
  2. OXBRYTA [Suspect]
     Active Substance: VOXELOTOR
     Dosage: 3 TABLETS, ONCE DAILY
     Route: 048
     Dates: start: 20230220
  3. OXBRYTA [Suspect]
     Active Substance: VOXELOTOR
     Dosage: 3 TABLETS ONCE DAILY
     Route: 048

REACTIONS (6)
  - Haemoglobin decreased [Unknown]
  - Haemoglobin abnormal [Unknown]
  - Scab [Unknown]
  - Melanocytic naevus [Unknown]
  - Rash [Unknown]
  - Product dose omission in error [Unknown]
